FAERS Safety Report 6584928-2 (Version None)
Quarter: 2010Q1

REPORT INFORMATION
  Report Type: 
  Country: None (occurrence: None)
  Receive Date: 20100217
  Receipt Date: 20100209
  Transmission Date: 20100710
  Serious: Yes (Disabling)
  Sender: FDA-Public Use
  Company Number: BR-ABBOTT-09P-020-0605747-00

PATIENT
  Sex: Female
  Weight: 63 kg

DRUGS (13)
  1. HUMIRA [Suspect]
     Indication: ANKYLOSING SPONDYLITIS
     Route: 058
     Dates: start: 20090601
  2. OMEPRAZOLE [Concomitant]
     Indication: GASTRIC DISORDER
     Route: 048
     Dates: start: 20070101
  3. OMEPRAZOLE [Concomitant]
     Indication: PROPHYLAXIS AGAINST GASTROINTESTINAL ULCER
     Route: 048
  4. ISONIAZID [Concomitant]
     Indication: TUBERCULIN TEST POSITIVE
     Route: 048
     Dates: start: 20090301, end: 20091201
  5. ISONIAZID [Concomitant]
     Dosage: RESTARTED
     Route: 048
     Dates: start: 20091001
  6. ISONIAZID [Concomitant]
     Route: 048
  7. BROMAZEPAM [Concomitant]
     Indication: SEDATIVE THERAPY
     Route: 048
  8. CAFFEINE, CARISOPRODOL, DICLOFENAC SODIUM, PARACETAMOL (TORSILAX) [Concomitant]
     Indication: PAIN
     Route: 048
     Dates: start: 20060101
  9. CAFFEINE, CARISOPRODOL, DICLOFENAC SODIUM, PARACETAMOL (TORSILAX) [Concomitant]
     Route: 048
  10. ORYZA SATIVA (MONALESS) [Concomitant]
     Indication: BLOOD CHOLESTEROL INCREASED
     Route: 048
     Dates: start: 20090401
  11. ORMIGREIN [Concomitant]
     Indication: HEADACHE
     Route: 048
     Dates: start: 20090301
  12. VOLTAREN [Concomitant]
     Indication: PAIN
     Route: 054
  13. DORFLEX [Concomitant]
     Indication: PAIN
     Route: 048

REACTIONS (13)
  - ARTHRALGIA [None]
  - BLINDNESS [None]
  - COUGH [None]
  - FATIGUE [None]
  - HEADACHE [None]
  - HYPERCHOLESTEROLAEMIA [None]
  - INJECTION SITE PAIN [None]
  - MEMORY IMPAIRMENT [None]
  - MUSCULOSKELETAL PAIN [None]
  - NECK PAIN [None]
  - OSTEOPOROSIS [None]
  - PAIN [None]
  - WEIGHT INCREASED [None]
